FAERS Safety Report 4621140-8 (Version None)
Quarter: 2005Q1

REPORT INFORMATION
  Report Type: 
  Country: None (occurrence: None)
  Receive Date: 20050328
  Receipt Date: 20050320
  Transmission Date: 20050727
  Serious: Yes (Hospitalization)
  Sender: FDA-Public Use
  Company Number: FABR-11039

PATIENT
  Age: 52 Year
  Sex: Male
  Weight: 43 kg

DRUGS (3)
  1. FABRAZYME [Suspect]
     Indication: FABRY'S DISEASE
     Dosage: 35 MG IV
     Route: 042
     Dates: start: 20041220
  2. HYDROXYZINE [Concomitant]
  3. PARACETAMOL [Concomitant]

REACTIONS (5)
  - ATRIOVENTRICULAR BLOCK COMPLETE [None]
  - CATHETER SEPSIS [None]
  - DISEASE RECURRENCE [None]
  - PROTEUS INFECTION [None]
  - STAPHYLOCOCCAL INFECTION [None]
